FAERS Safety Report 14287199 (Version 2)
Quarter: 2017Q4

REPORT INFORMATION
  Report Type: Spontaneous
  Country: US (occurrence: US)
  Receive Date: 20171214
  Receipt Date: 20171222
  Transmission Date: 20180321
  Serious: No
  Sender: FDA-Public Use
  Company Number: US-B.I. PHARMACEUTICALS,INC./RIDGEFIELD-2017-BI-065804

PATIENT
  Sex: Male

DRUGS (1)
  1. SPIRIVA [Suspect]
     Active Substance: TIOTROPIUM BROMIDE MONOHYDRATE
     Indication: PRODUCT USED FOR UNKNOWN INDICATION
     Dosage: FORM STRENGTH: 18 MCG; FORM: CAPSULE ADMINISTRATION CORRECT? NO ACTION(S) TAKEN: DOSE NOT CHANGED
     Route: 055
     Dates: start: 2007

REACTIONS (2)
  - Hypoacusis [Unknown]
  - Product quality issue [Unknown]
